FAERS Safety Report 21946313 (Version 1)
Quarter: 2023Q1

REPORT INFORMATION
  Report Type: Spontaneous
  Country: US (occurrence: None)
  Receive Date: 20230202
  Receipt Date: 20230202
  Transmission Date: 20230418
  Serious: Yes (Death)
  Sender: FDA-Public Use
  Company Number: None

PATIENT
  Age: 86 Year
  Sex: Male

DRUGS (2)
  1. ABIRATERONE [Suspect]
     Active Substance: ABIRATERONE
  2. ORGOVYX [Concomitant]
     Active Substance: RELUGOLIX
     Dates: start: 20220201, end: 20230123

REACTIONS (1)
  - Death [None]

NARRATIVE: CASE EVENT DATE: 20230123
